FAERS Safety Report 4639480-5 (Version None)
Quarter: 2005Q2

REPORT INFORMATION
  Report Type: 
  Country: None (occurrence: None)
  Receive Date: 20050418
  Receipt Date: 20050412
  Transmission Date: 20051028
  Serious: Yes (Death, Hospitalization)
  Sender: FDA-Public Use
  Company Number: FRWYE576912APR05

PATIENT
  Age: 64 Year
  Sex: Male

DRUGS (5)
  1. GEMTUZUMAB OZOGAMICIN (GEMTUZUMAB OZOGAMICIN, INJECTION, 0) [Suspect]
     Indication: ACUTE MYELOID LEUKAEMIA
     Dosage: 16 MG 1X PER 1 DAY INTRAVENOUS
     Route: 042
     Dates: start: 20050224, end: 20050224
  2. FUROSEMIDE [Concomitant]
  3. RAMIPRIL [Concomitant]
  4. LORAZEPAM [Concomitant]
  5. XALATAN [Concomitant]

REACTIONS (3)
  - ENCEPHALOPATHY [None]
  - PORTAL VEIN THROMBOSIS [None]
  - VENOOCCLUSIVE LIVER DISEASE [None]
